FAERS Safety Report 5802542-0 (Version None)
Quarter: 2008Q3

REPORT INFORMATION
  Report Type: 
  Country: None (occurrence: None)
  Receive Date: 20080701
  Receipt Date: 20080102
  Transmission Date: 20090109
  Serious: Yes (Hospitalization)
  Sender: FDA-Public Use
  Company Number: 07-000346

PATIENT
  Age: 43 Year
  Sex: Female
  Weight: 59.9 kg

DRUGS (5)
  1. ESTROSTEP FE [Suspect]
     Indication: HOT FLUSH
     Dosage: 20-30-35/1000 UG, QD, ORAL
     Route: 048
     Dates: start: 20050901, end: 20060601
  2. ESTROSTEP FE [Suspect]
     Indication: MENOPAUSE
     Dosage: 20-30-35/1000 UG, QD, ORAL
     Route: 048
     Dates: start: 20050901, end: 20060601
  3. ESTROSTEP FE [Suspect]
     Indication: NIGHT SWEATS
     Dosage: 20-30-35/1000 UG, QD, ORAL
     Route: 048
     Dates: start: 20050901, end: 20060601
  4. FOLIC ACID [Concomitant]
  5. GABAPENTIN [Concomitant]

REACTIONS (2)
  - PULMONARY EMBOLISM [None]
  - THROMBOSIS [None]
